FAERS Safety Report 9549919 (Version 2)
Quarter: 2013Q3

REPORT INFORMATION
  Report Type: Spontaneous
  Country: US (occurrence: US)
  Receive Date: 20130924
  Receipt Date: 20130924
  Transmission Date: 20140515
  Serious: Yes (Other)
  Sender: FDA-Public Use
  Company Number: US-GILEAD-2013-0081828

PATIENT
  Sex: Male

DRUGS (2)
  1. LETAIRIS [Suspect]
     Indication: PRODUCT USED FOR UNKNOWN INDICATION
     Dosage: 1.25 MG, QD
     Dates: start: 20130430
  2. ADCIRCA [Concomitant]

REACTIONS (4)
  - Loss of consciousness [Unknown]
  - Syncope [Unknown]
  - Abdominal pain upper [Unknown]
  - Fatigue [Unknown]
